FAERS Safety Report 14027676 (Version 10)
Quarter: 2023Q2

REPORT INFORMATION
  Report Type: Spontaneous
  Country: US (occurrence: US)
  Receive Date: 20170929
  Receipt Date: 20230419
  Transmission Date: 20230722
  Serious: No
  Sender: FDA-Public Use
  Company Number: US-PFIZER INC-2017419527

PATIENT
  Age: 51 Year
  Sex: Female
  Weight: 55 kg

DRUGS (19)
  1. AROMASIN [Suspect]
     Active Substance: EXEMESTANE
     Indication: Breast cancer female
     Dosage: 25 MG, 1X/DAY
     Route: 048
     Dates: start: 201704
  2. AROMASIN [Suspect]
     Active Substance: EXEMESTANE
     Dosage: 25 MG, 2X/DAY
     Route: 048
     Dates: start: 201704
  3. AROMASIN [Suspect]
     Active Substance: EXEMESTANE
     Dosage: 25 MG, 1X/DAY (EVERY MORNING AFTER BREAKFAST)
     Route: 048
  4. XANAX [Concomitant]
     Active Substance: ALPRAZOLAM
     Indication: Anxiety
     Dosage: 1 MG, DAILY (AT NIGHT BEFORE BED)
     Route: 048
     Dates: start: 20090506
  5. XANAX [Concomitant]
     Active Substance: ALPRAZOLAM
     Dosage: 2 MG, AS NEEDED (NIGHTLY)
     Route: 048
  6. NORCO [Concomitant]
     Active Substance: ACETAMINOPHEN\HYDROCODONE BITARTRATE
     Indication: Pain
     Dosage: 1 DF, [HYDROCODONE BITARTRATE-5MG]/[PARACETAMOL-325MG]AS NEEDED (EVERY 6 HOURS)
     Route: 048
  7. MYCIFRADIN [Concomitant]
     Active Substance: NEOMYCIN SULFATE
     Dosage: 500 MG, UNK (AS DIRECTED/THE DAY BEFORE SURGERY 5 PM, 6 PM, AND 10 PM)
     Route: 048
  8. FLAGYL [Concomitant]
     Active Substance: METRONIDAZOLE\METRONIDAZOLE HYDROCHLORIDE
     Dosage: 250 MG, UNK (AS DIRECTED, THE DAY BEFORE SURGERY 5 PM, 6 PM, AND 10 PM)
     Route: 048
  9. COLLAGEN PLUS VITAMIN C [Concomitant]
     Dosage: UNK, DAILY
     Route: 048
  10. VITAMIN D3 [Concomitant]
     Active Substance: CHOLECALCIFEROL
     Dosage: 10000 IU, DAILY
     Route: 048
  11. PRED MILD [Concomitant]
     Active Substance: PREDNISOLONE ACETATE
     Dosage: UNK
     Route: 047
  12. PRILOSEC [Concomitant]
     Active Substance: OMEPRAZOLE MAGNESIUM
     Dosage: 20 MG, 1X/DAY (EVERY MORNING BEFORE BREAKFAST)
     Route: 048
  13. CYMBALTA [Concomitant]
     Active Substance: DULOXETINE HYDROCHLORIDE
     Dosage: 30 MG, DAILY (SWALLOW WHOLE)
     Route: 048
  14. OMEGA 3 [Concomitant]
     Active Substance: CAPSAICIN
     Dosage: 1 DF, DAILY
     Route: 048
  15. LOTEMAX [Concomitant]
     Active Substance: LOTEPREDNOL ETABONATE
     Dosage: 1 GTT, 3X/DAY (APPLY 1 DROP INTO BOTH EYES)
     Route: 047
  16. OPTIVAR [Concomitant]
     Active Substance: AZELASTINE HYDROCHLORIDE
     Dosage: 1 GTT, 2X/DAY (APPLY 1 DROP INTO BOTH EYES)
     Route: 047
  17. ZOFRAN ODT [Concomitant]
     Active Substance: ONDANSETRON HYDROCHLORIDE
     Dosage: 4 MG, 2X/DAY (EVERY 12 HOURS)
     Route: 048
  18. COMPAZINE [Concomitant]
     Active Substance: PROCHLORPERAZINE MALEATE
     Indication: Nausea
     Dosage: 10 MG, AS NEEDED (EVERY 6 HOURS)
     Route: 048
  19. ADVIL [Concomitant]
     Active Substance: IBUPROFEN
     Indication: Pain
     Dosage: 200 MG, AS NEEDED (EVERY 6 HOURS AS NEEDED FOR PAIN. BEST IF TAKEN WITH FOOD)
     Route: 048

REACTIONS (12)
  - Fatigue [Not Recovered/Not Resolved]
  - Hunger [Not Recovered/Not Resolved]
  - Weight increased [Recovered/Resolved]
  - Alopecia [Not Recovered/Not Resolved]
  - Lymphadenopathy [Unknown]
  - Vomiting [Unknown]
  - Gastroenteritis viral [Unknown]
  - Hip deformity [Unknown]
  - Knee deformity [Unknown]
  - Off label use [Unknown]
  - Product use issue [Unknown]
  - Product dose omission issue [Unknown]

NARRATIVE: CASE EVENT DATE: 20170401
